FAERS Safety Report 11146154 (Version 3)
Quarter: 2015Q3

REPORT INFORMATION
  Report Type: Spontaneous
  Country: US (occurrence: US)
  Receive Date: 20150528
  Receipt Date: 20150722
  Transmission Date: 20151125
  Serious: Yes (Other)
  Sender: FDA-Public Use
  Company Number: US-JNJFOC-20140716509

PATIENT
  Age: 65 Year
  Sex: Female

DRUGS (14)
  1. IMBRUVICA [Suspect]
     Active Substance: IBRUTINIB
     Indication: MANTLE CELL LYMPHOMA
     Route: 048
     Dates: start: 20140604, end: 201406
  2. ALLOPURINOL. [Concomitant]
     Active Substance: ALLOPURINOL
     Route: 048
  3. TYLENOL [Concomitant]
     Active Substance: ACETAMINOPHEN
  4. IMBRUVICA [Suspect]
     Active Substance: IBRUTINIB
     Indication: MANTLE CELL LYMPHOMA
     Route: 048
     Dates: start: 20140503, end: 20140516
  5. BENADRYL [Concomitant]
     Active Substance: DIPHENHYDRAMINE HYDROCHLORIDE
  6. IMBRUVICA [Suspect]
     Active Substance: IBRUTINIB
     Indication: MANTLE CELL LYMPHOMA
     Dosage: 280 MG, QD 10 DAYS ON AND 2 WEEKS OFF
     Route: 048
     Dates: start: 20150417
  7. PEPCID [Concomitant]
     Active Substance: FAMOTIDINE
     Route: 048
  8. ASA [Concomitant]
     Active Substance: ASPIRIN
  9. IMBRUVICA [Suspect]
     Active Substance: IBRUTINIB
     Indication: MANTLE CELL LYMPHOMA
     Dosage: DOSAGE: AT REDUCED DOSE
     Route: 048
     Dates: start: 20140524, end: 20140604
  10. PREMARIN [Concomitant]
     Active Substance: ESTROGENS, CONJUGATED
     Route: 048
  11. REFRESH [Concomitant]
     Active Substance: UNSPECIFIED INGREDIENT
  12. CLARITIN [Concomitant]
     Active Substance: LORATADINE
     Route: 048
  13. IMBRUVICA [Suspect]
     Active Substance: IBRUTINIB
     Indication: MANTLE CELL LYMPHOMA
     Route: 048
     Dates: start: 20140815, end: 201408
  14. MURO 128 [Concomitant]
     Active Substance: SODIUM CHLORIDE
     Dosage: QPM, EYE GEL
     Route: 047

REACTIONS (4)
  - Inappropriate schedule of drug administration [Not Recovered/Not Resolved]
  - Injury corneal [Recovered/Resolved]
  - Dry eye [Recovered/Resolved]
  - Corneal abrasion [Recovered/Resolved]

NARRATIVE: CASE EVENT DATE: 201406
